FAERS Safety Report 15531011 (Version 1)
Quarter: 2018Q4

REPORT INFORMATION
  Report Type: Report from Study
  Country: JP (occurrence: JP)
  Receive Date: 20181019
  Receipt Date: 20181019
  Transmission Date: 20190205
  Serious: No
  Sender: FDA-Public Use
  Company Number: JP-BIOVERATIV-2016BI00261554

PATIENT
  Age: 44 Year
  Sex: Male
  Weight: 69.7 kg

DRUGS (19)
  1. ALPROLIX [Suspect]
     Active Substance: EFTRENONACOG ALFA
     Dosage: TOTAL DOSE: 3000IU
     Route: 042
     Dates: start: 20160101, end: 20160101
  2. ALPROLIX [Suspect]
     Active Substance: EFTRENONACOG ALFA
     Dosage: ON-DEMAND
     Route: 042
     Dates: start: 20160415, end: 20160415
  3. ALPROLIX [Suspect]
     Active Substance: EFTRENONACOG ALFA
     Dosage: PRELIMINARY SUPPLEMENTAL TREATMENT
     Route: 042
     Dates: start: 20161018, end: 20161020
  4. ALPROLIX [Suspect]
     Active Substance: EFTRENONACOG ALFA
     Indication: FACTOR IX DEFICIENCY
     Route: 042
     Dates: start: 20141025
  5. ALPROLIX [Suspect]
     Active Substance: EFTRENONACOG ALFA
     Dosage: TOTAL DOSE: 4000IU
     Route: 042
     Dates: start: 20151227, end: 20151227
  6. NEXIUM [Concomitant]
     Active Substance: ESOMEPRAZOLE MAGNESIUM
     Indication: GASTROOESOPHAGEAL REFLUX DISEASE
     Route: 048
     Dates: start: 20160109, end: 20161025
  7. ALPROLIX [Suspect]
     Active Substance: EFTRENONACOG ALFA
     Dosage: PRELIMINARY SUPPLEMENTAL TREATMENT
     Route: 042
     Dates: start: 20150628, end: 20150909
  8. TAKEPRON [Concomitant]
     Active Substance: LANSOPRAZOLE
     Indication: GASTROOESOPHAGEAL REFLUX DISEASE
     Route: 048
     Dates: start: 20150718, end: 20150817
  9. ALPROLIX [Suspect]
     Active Substance: EFTRENONACOG ALFA
     Dosage: ON-DEMAND
     Route: 042
     Dates: start: 20151219, end: 20151222
  10. ALPROLIX [Suspect]
     Active Substance: EFTRENONACOG ALFA
     Dosage: TOTAL DOSE: 6000IU
     Route: 042
     Dates: start: 20151226, end: 20151226
  11. ALPROLIX [Suspect]
     Active Substance: EFTRENONACOG ALFA
     Dosage: TOTAL DOSE: 3000IU
     Route: 042
     Dates: start: 20160104, end: 20160104
  12. ALPROLIX [Suspect]
     Active Substance: EFTRENONACOG ALFA
     Dosage: PRELIMINARY SUPPLEMENTAL TREATMENT
     Route: 042
     Dates: start: 20160307, end: 20160312
  13. ALPROLIX [Suspect]
     Active Substance: EFTRENONACOG ALFA
     Dosage: PRELIMINARY SUPPLEMENTAL TREATMENT
     Route: 042
     Dates: start: 20160503, end: 20160503
  14. URSODEOXYCHOLIC ACID [Concomitant]
     Active Substance: URSODIOL
     Indication: CHRONIC HEPATITIS C
     Route: 048
     Dates: start: 20141025, end: 20161025
  15. ALPROLIX [Suspect]
     Active Substance: EFTRENONACOG ALFA
     Dosage: TOTAL DOSE: 7000IU
     Route: 042
     Dates: start: 20151224, end: 20151224
  16. ALPROLIX [Suspect]
     Active Substance: EFTRENONACOG ALFA
     Dosage: TOTAL DOSE: 6000IU
     Route: 042
     Dates: start: 20151225, end: 20151225
  17. ALPROLIX [Suspect]
     Active Substance: EFTRENONACOG ALFA
     Dosage: TOTAL DOSE: 4000IU
     Route: 042
     Dates: start: 20151229, end: 20151229
  18. ALPROLIX [Suspect]
     Active Substance: EFTRENONACOG ALFA
     Dosage: ON-DEMAND
     Route: 042
     Dates: start: 20160604, end: 20160607
  19. ALPROLIX [Suspect]
     Active Substance: EFTRENONACOG ALFA
     Dosage: TOTAL DOSE: 5000IU
     Route: 042
     Dates: start: 20151224, end: 20151224

REACTIONS (4)
  - Haemorrhage subcutaneous [Recovered/Resolved]
  - Nasopharyngitis [Recovered/Resolved]
  - Postoperative ileus [Recovered/Resolved]
  - Hypertension [Not Recovered/Not Resolved]

NARRATIVE: CASE EVENT DATE: 20151226
